FAERS Safety Report 25631025 (Version 1)
Quarter: 2025Q3

REPORT INFORMATION
  Report Type: Spontaneous
  Country: GB (occurrence: GB)
  Receive Date: 20250801
  Receipt Date: 20250801
  Transmission Date: 20251020
  Serious: Yes (Hospitalization, Other)
  Sender: AUROBINDO
  Company Number: GB-JAZZ PHARMACEUTICALS-2024-GB-000014

PATIENT
  Age: 56 Year
  Sex: Female
  Weight: 65 kg

DRUGS (18)
  1. LOPERAMIDE [Suspect]
     Active Substance: LOPERAMIDE
     Indication: Prophylaxis
     Dosage: 16 MILLIGRAM, ONCE A DAY (16 MG, QD, 4 MG, BID, CYCLE1, DAY1)
     Route: 065
     Dates: start: 20231229
  2. OXALIPLATIN [Suspect]
     Active Substance: OXALIPLATIN
     Indication: Oesophageal adenocarcinoma
     Route: 042
     Dates: start: 20231229, end: 20231229
  3. OXALIPLATIN [Suspect]
     Active Substance: OXALIPLATIN
     Route: 042
     Dates: start: 20231229, end: 20231229
  4. OXALIPLATIN [Suspect]
     Active Substance: OXALIPLATIN
     Route: 042
     Dates: start: 20231229
  5. ZANIDATAMAB [Suspect]
     Active Substance: ZANIDATAMAB
     Indication: Oesophageal adenocarcinoma
     Route: 042
     Dates: start: 20231229
  6. DEXAMETHASONE [Concomitant]
     Active Substance: DEXAMETHASONE
     Indication: Myalgia
     Dosage: 1 MILLIGRAM, ONCE A DAY (1 MG, QD)
     Route: 065
     Dates: start: 20231109, end: 20231215
  7. PREGABALIN [Concomitant]
     Active Substance: PREGABALIN
     Indication: Myalgia
     Dosage: 100 MILLIGRAM, ONCE A DAY (100 MG, QD)
     Route: 065
     Dates: start: 20230811
  8. CELECOXIB [Concomitant]
     Active Substance: CELECOXIB
     Indication: Product used for unknown indication
     Route: 065
  9. MORPHINE SULFATE [Concomitant]
     Active Substance: MORPHINE SULFATE
     Indication: Myalgia
     Dosage: 140 MILLIGRAM, ONCE A DAY (70 MG, BID)
     Route: 065
     Dates: start: 20231015
  10. OMEPRAZOLE [Concomitant]
     Active Substance: OMEPRAZOLE
     Indication: Gastrooesophageal reflux disease
     Dosage: 20 MILLIGRAM, ONCE A DAY (20 MG, QD)
     Route: 065
     Dates: start: 20210107
  11. AMINOPHYLLINE [Concomitant]
     Active Substance: AMINOPHYLLINE
     Indication: Product used for unknown indication
     Route: 065
  12. ACETAMINOPHEN [Concomitant]
     Active Substance: ACETAMINOPHEN
     Indication: Myalgia
     Dosage: 1 GRAM, ONCE A DAY (1 G, QD)
     Route: 065
     Dates: start: 20180101
  13. FOLIC ACID\IRON\MINERALS\VITAMINS [Concomitant]
     Active Substance: FOLIC ACID\IRON\MINERALS\VITAMINS
     Indication: Supplementation therapy
     Dosage: 1 DOSAGE FORM, ONCE A DAY (1 DF, QD)
     Route: 065
     Dates: start: 20180101
  14. POLYETHYLENE GLYCOL 3350\POTASSIUM CHLORIDE\SODIUM BICARBONATE\SODIUM [Concomitant]
     Active Substance: POLYETHYLENE GLYCOL 3350\POTASSIUM CHLORIDE\SODIUM BICARBONATE\SODIUM CHLORIDE
     Indication: Constipation
     Route: 065
     Dates: start: 20180101
  15. GAVISCON [Concomitant]
     Active Substance: ALUMINUM HYDROXIDE\MAGNESIUM CARBONATE
     Indication: Dyspepsia
     Route: 065
     Dates: start: 20230101
  16. DOCUSATE SODIUM [Concomitant]
     Active Substance: DOCUSATE SODIUM
     Indication: Constipation
     Route: 065
     Dates: start: 20231119
  17. VITAMIN B12 [Concomitant]
     Active Substance: CYANOCOBALAMIN
     Indication: Gastrectomy
     Route: 065
     Dates: start: 20180101
  18. Medi derm rx [Concomitant]
     Indication: Decubitus ulcer
     Route: 065
     Dates: start: 20230512

REACTIONS (1)
  - Infusion related reaction [Recovered/Resolved]

NARRATIVE: CASE EVENT DATE: 20231229
